FAERS Safety Report 23803281 (Version 5)
Quarter: 2024Q4

REPORT INFORMATION
  Report Type: Report from Study
  Country: US (occurrence: US)
  Receive Date: 20240501
  Receipt Date: 20241014
  Transmission Date: 20250114
  Serious: Yes (Other)
  Sender: ROCHE
  Company Number: US-ROCHE-3261176

PATIENT
  Age: 68 Year
  Sex: Male

DRUGS (3)
  1. ERIVEDGE [Suspect]
     Active Substance: VISMODEGIB
     Indication: Basal cell carcinoma
     Dosage: TAKE 1 CAPSULE BY MOUTH EVERY DAY (TAKE WHOLE WITH WATER)
     Route: 048
  2. ERIVEDGE [Suspect]
     Active Substance: VISMODEGIB
     Route: 048
  3. ESBRIET [Suspect]
     Active Substance: PIRFENIDONE
     Indication: Idiopathic pulmonary fibrosis
     Route: 065

REACTIONS (25)
  - Dizziness [Unknown]
  - Bone swelling [Unknown]
  - Nervous system disorder [Unknown]
  - Skin induration [Unknown]
  - Alopecia [Unknown]
  - Hypoaesthesia [Unknown]
  - Injury [Unknown]
  - Ear infection [Unknown]
  - Anaemia [Unknown]
  - Diabetes mellitus [Unknown]
  - Weight decreased [Unknown]
  - Decreased appetite [Unknown]
  - Ear neoplasm malignant [Unknown]
  - Ear dryness [Unknown]
  - Food intolerance [Unknown]
  - Headache [Unknown]
  - Anosmia [Unknown]
  - Ageusia [Unknown]
  - Dysphagia [Unknown]
  - Muscle spasms [Unknown]
  - Balance disorder [Unknown]
  - Asthenia [Unknown]
  - Pain [Unknown]
  - Fatigue [Unknown]
  - Muscle atrophy [Unknown]
